FAERS Safety Report 10196909 (Version 1)
Quarter: 2014Q2

REPORT INFORMATION
  Report Type: Spontaneous
  Country: GB (occurrence: GB)
  Receive Date: 20140527
  Receipt Date: 20140527
  Transmission Date: 20141212
  Serious: Yes (Hospitalization)
  Sender: FDA-Public Use
  Company Number: GB-ACTAVIS-2014-10612

PATIENT
  Age: 66 Year
  Sex: Female

DRUGS (2)
  1. ZOLEDRONIC ACID (UNKNOWN) [Suspect]
     Indication: OSTEOPOROSIS
     Dosage: 5 MG, UNK
     Route: 042
     Dates: start: 20091121
  2. DENOSUMAB [Concomitant]
     Indication: OSTEOPOROSIS
     Dosage: 60 MG / 1 ML , UNK
     Route: 058
     Dates: start: 20131101

REACTIONS (1)
  - Atypical femur fracture [Unknown]
